FAERS Safety Report 7321133-6 (Version None)
Quarter: 2011Q1

REPORT INFORMATION
  Report Type: 
  Country: None (occurrence: None)
  Receive Date: 20110223
  Receipt Date: 20110223
  Transmission Date: 20110831
  Serious: Yes (Other)
  Sender: FDA-Public Use
  Company Number: None

PATIENT
  Age: 65 Year
  Sex: Female
  Weight: 72.5755 kg

DRUGS (1)
  1. DONEPEZIL [Suspect]
     Indication: AMNESIA
     Dosage: 10MG 1QD PO
     Route: 048
     Dates: start: 20110101, end: 20110215

REACTIONS (2)
  - HALLUCINATION [None]
  - PRODUCT SUBSTITUTION ISSUE [None]
